FAERS Safety Report 9755535 (Version 1)
Quarter: 2013Q4

REPORT INFORMATION
  Report Type: Spontaneous
  Country: US (occurrence: US)
  Receive Date: 20131213
  Receipt Date: 20131213
  Transmission Date: 20140711
  Serious: No
  Sender: FDA-Public Use
  Company Number: US-GLAXOSMITHKLINE-A1019830A

PATIENT
  Age: 55 Year
  Sex: Female

DRUGS (3)
  1. TARGET NTS CLEAR 21 MG [Suspect]
     Indication: EX-TOBACCO USER
     Dates: start: 20130309
  2. TARGET NTS CLEAR 21 MG [Suspect]
     Indication: EX-TOBACCO USER
     Dates: start: 20130309
  3. TARGET NTS CLEAR 7 MG [Suspect]

REACTIONS (10)
  - Abnormal dreams [Not Recovered/Not Resolved]
  - Overdose [Unknown]
  - Stomatitis [Not Recovered/Not Resolved]
  - Oral pruritus [Not Recovered/Not Resolved]
  - Headache [Unknown]
  - Weight decreased [Not Recovered/Not Resolved]
  - Eating disorder [Not Recovered/Not Resolved]
  - Drug administration error [Unknown]
  - Tongue pruritus [Unknown]
  - Drug ineffective [Unknown]
